FAERS Safety Report 25616734 (Version 1)
Quarter: 2025Q3

REPORT INFORMATION
  Report Type: Spontaneous
  Country: US (occurrence: US)
  Receive Date: 20250729
  Receipt Date: 20250729
  Transmission Date: 20251020
  Serious: Yes (Other)
  Sender: MYLAN
  Company Number: US-MYLANLABS-2025M1061671

PATIENT
  Age: 61 Year
  Sex: Male

DRUGS (3)
  1. PREDNISONE [Suspect]
     Active Substance: PREDNISONE
     Indication: Polymyositis
  2. METHOTREXATE [Suspect]
     Active Substance: METHOTREXATE
     Indication: Polymyositis
  3. Immunoglobulin [Concomitant]
     Indication: Polymyositis

REACTIONS (3)
  - Drug ineffective [Unknown]
  - Hepatic cirrhosis [Unknown]
  - Off label use [Unknown]
